FAERS Safety Report 16158108 (Version 1)
Quarter: 2019Q2

REPORT INFORMATION
  Report Type: Spontaneous
  Country: US (occurrence: US)
  Receive Date: 20190403
  Receipt Date: 20190403
  Transmission Date: 20190711
  Serious: Yes (Death)
  Sender: FDA-Public Use
  Company Number: None

PATIENT
  Sex: Female

DRUGS (10)
  1. MEMANTINE. [Concomitant]
     Active Substance: MEMANTINE
  2. OLANZAPINE. [Concomitant]
     Active Substance: OLANZAPINE
  3. LORAZEPAM. [Concomitant]
     Active Substance: LORAZEPAM
  4. SERTRALINE [Concomitant]
     Active Substance: SERTRALINE HYDROCHLORIDE
  5. NOVOLOG [Concomitant]
     Active Substance: INSULIN ASPART
  6. OXYCONTIN [Concomitant]
     Active Substance: OXYCODONE HYDROCHLORIDE
  7. XALKORI [Suspect]
     Active Substance: CRIZOTINIB
     Indication: NEOPLASM SKIN
     Route: 048
  8. GRANISETRON [Concomitant]
     Active Substance: GRANISETRON
  9. METHYLPHENIDATE. [Concomitant]
     Active Substance: METHYLPHENIDATE
  10. ESCITALOPRAM [Concomitant]
     Active Substance: ESCITALOPRAM OXALATE

REACTIONS (1)
  - Death [None]
